FAERS Safety Report 21889501 (Version 1)
Quarter: 2023Q1

REPORT INFORMATION
  Report Type: Report from Study
  Country: IT (occurrence: IT)
  Receive Date: 20230120
  Receipt Date: 20230120
  Transmission Date: 20230418
  Serious: Yes (Hospitalization)
  Sender: FDA-Public Use
  Company Number: None

PATIENT
  Age: 16 Year
  Sex: Male
  Weight: 59 kg

DRUGS (3)
  1. METHOTREXATE (METHOTREXATE SODIUM) [Suspect]
     Active Substance: METHOTREXATE SODIUM
     Indication: Non-Hodgkin^s lymphoma
     Dosage: 5000MG,THERAPY END DATE : NASK,  METHOTRESSATE TEVA, INJECTION/INFUSION
     Dates: start: 20221214
  2. DOXORUBICIN HYDROCHLORIDE [Suspect]
     Active Substance: DOXORUBICIN HYDROCHLORIDE
     Indication: Product used for unknown indication
     Dosage: FIRST 40 MG INFUSION ON 12/17/2022 AND SECOND INFUSION ON 12/18/2022, DURATION : 1 DAY, INJECTION/IN
     Dates: start: 20221217, end: 20221218
  3. CYCLOPHOSPHAMIDE [Suspect]
     Active Substance: CYCLOPHOSPHAMIDE
     Indication: Product used for unknown indication
     Dosage: STARTS ON. 12/14/2022 WITH FIRST 340 MG INFUSION, SECOND INFUSION ON 12/17/2022 AND LAST ON 12/18/20
     Dates: start: 20221214, end: 20221218

REACTIONS (2)
  - Aplasia [Not Recovered/Not Resolved]
  - Mucosal inflammation [Unknown]

NARRATIVE: CASE EVENT DATE: 20221227
